FAERS Safety Report 6074725-9 (Version None)
Quarter: 2009Q1

REPORT INFORMATION
  Report Type: 
  Country: None (occurrence: None)
  Receive Date: 20090212
  Receipt Date: 20090206
  Transmission Date: 20090719
  Serious: Yes (Other)
  Sender: FDA-Public Use
  Company Number: CN-JNJFOC-20090201831

PATIENT
  Age: 60 Year
  Sex: Female

DRUGS (1)
  1. SPORANOX [Suspect]
     Indication: TINEA PEDIS
     Route: 048

REACTIONS (2)
  - CHEST DISCOMFORT [None]
  - SUPRAVENTRICULAR EXTRASYSTOLES [None]
